FAERS Safety Report 5099077-2 (Version None)
Quarter: 2006Q3

REPORT INFORMATION
  Report Type: 
  Country: None (occurrence: None)
  Receive Date: 20060731
  Receipt Date: 20051212
  Transmission Date: 20061208
  Serious: Yes (Other)
  Sender: FDA-Public Use
  Company Number: 220565

PATIENT
  Age: 3 Year
  Sex: Male

DRUGS (1)
  1. RITUXAN [Suspect]
     Indication: DRUG USE FOR UNKNOWN INDICATION
     Dosage: 1/WEEK, INTRAVENOUS
     Route: 042

REACTIONS (1)
  - SERUM SICKNESS [None]
